FAERS Safety Report 7428391-8 (Version None)
Quarter: 2011Q2

REPORT INFORMATION
  Report Type: 
  Country: None (occurrence: None)
  Receive Date: 20110415
  Receipt Date: 20110415
  Transmission Date: 20111010
  Serious: Yes (Hospitalization)
  Sender: FDA-Public Use
  Company Number: None

PATIENT
  Age: 63 Year
  Sex: Male

DRUGS (1)
  1. BYETTA [Suspect]
     Indication: DIABETES MELLITUS
     Dosage: 250MCG BID SQ } 2 YEAR
     Route: 058

REACTIONS (3)
  - LIPASE INCREASED [None]
  - ABDOMINAL PAIN [None]
  - BLOOD AMYLASE INCREASED [None]
